FAERS Safety Report 9385817 (Version 2)
Quarter: 2014Q1

REPORT INFORMATION
  Report Type: Spontaneous
  Country: US (occurrence: US)
  Receive Date: 20130705
  Receipt Date: 20140228
  Transmission Date: 20141002
  Serious: Yes (Death, Hospitalization)
  Sender: FDA-Public Use
  Company Number: US-B.I. PHARMACEUTICALS,INC./RIDGEFIELD-2013-BI-19364BP

PATIENT
  Age: 85 Year
  Sex: Female
  Weight: 55.8 kg

DRUGS (4)
  1. PRADAXA [Suspect]
     Indication: ATRIAL FIBRILLATION
     Dosage: 300 MG
     Route: 048
     Dates: start: 20101222, end: 20110625
  2. PRADAXA [Suspect]
     Indication: ANTICOAGULANT THERAPY
  3. CELEBREX [Concomitant]
     Dosage: 200 MG
     Route: 048
  4. METOPROLOL [Concomitant]
     Route: 048

REACTIONS (3)
  - Cerebral haemorrhage [Fatal]
  - Fall [Unknown]
  - Skull fracture [Unknown]
